FAERS Safety Report 5330947-3 (Version None)
Quarter: 2007Q2

REPORT INFORMATION
  Report Type: 
  Country: None (occurrence: None)
  Receive Date: 20070522
  Receipt Date: 20070510
  Transmission Date: 20071010
  Serious: Yes (Death)
  Sender: FDA-Public Use
  Company Number: US-AMGEN-STX225002

PATIENT
  Sex: Female

DRUGS (10)
  1. ENBREL [Suspect]
     Indication: RHEUMATOID ARTHRITIS
     Route: 058
     Dates: start: 20030101, end: 20070101
  2. ENBREL [Suspect]
     Indication: PSORIATIC ARTHROPATHY
  3. ENBREL [Suspect]
     Indication: PSORIASIS
  4. ENBREL [Suspect]
     Indication: ANKYLOSING SPONDYLITIS
  5. METHOTREXATE [Concomitant]
     Indication: RHEUMATOID ARTHRITIS
     Route: 048
  6. VYTORIN [Concomitant]
     Route: 048
  7. DYAZIDE [Concomitant]
     Route: 048
  8. SUCRALFATE [Concomitant]
     Route: 048
  9. MEDROL [Concomitant]
     Indication: RHEUMATOID ARTHRITIS
     Route: 048
  10. FOLIC ACID [Concomitant]

REACTIONS (1)
  - PANCREATIC CARCINOMA METASTATIC [None]
